FAERS Safety Report 9610856 (Version 2)
Quarter: 2013Q4

REPORT INFORMATION
  Report Type: Spontaneous
  Country: IT (occurrence: IT)
  Receive Date: 20131009
  Receipt Date: 20131023
  Transmission Date: 20140711
  Serious: Yes (Death)
  Sender: FDA-Public Use
  Company Number: PHHY2013IT110211

PATIENT
  Sex: Male

DRUGS (8)
  1. ALLOPURINOL [Suspect]
     Indication: HYPERURICAEMIA
     Dosage: 300 MG, QD
     Route: 048
     Dates: start: 20130825, end: 20130920
  2. POTASSIUM CANRENOATE [Concomitant]
  3. TRAZODONE [Concomitant]
  4. TERAZOSINE [Concomitant]
  5. PANTOPRAZOLE [Concomitant]
  6. FUROSEMIDE [Concomitant]
  7. TORASEMIDE [Concomitant]
  8. ANTICOAGULANTS [Concomitant]

REACTIONS (7)
  - Renal failure acute [Fatal]
  - Anuria [Fatal]
  - Stevens-Johnson syndrome [Fatal]
  - Skin exfoliation [Fatal]
  - Urticaria [Fatal]
  - Rash generalised [Fatal]
  - Hypotension [Fatal]
